FAERS Safety Report 13859278 (Version 1)
Quarter: 2017Q3

REPORT INFORMATION
  Report Type: Spontaneous
  Country: US (occurrence: US)
  Receive Date: 20170811
  Receipt Date: 20170811
  Transmission Date: 20171127
  Serious: No
  Sender: FDA-Public Use
  Company Number: US-PERRIGO-17US003171

PATIENT
  Age: 11 Year
  Sex: Male
  Weight: 45.35 kg

DRUGS (4)
  1. LORATADINE. [Suspect]
     Active Substance: LORATADINE
     Dosage: 10 MG AT NIGHT, 20 MG IN TH E MORNING
     Route: 048
     Dates: start: 20170409, end: 20170410
  2. LORATADINE. [Suspect]
     Active Substance: LORATADINE
     Indication: PRODUCT USED FOR UNKNOWN INDICATION
     Dosage: 10 MG, BID
     Route: 048
  3. FLUTICASONE PROPIONATE. [Concomitant]
     Active Substance: FLUTICASONE PROPIONATE
     Indication: PRODUCT USED FOR UNKNOWN INDICATION
     Dosage: 1 PUFF, EACH NOSTRIL
     Route: 045
  4. FLUTICASONE PROPIONATE. [Concomitant]
     Active Substance: FLUTICASONE PROPIONATE
     Dosage: 2 PUFF, EACH NOSTRIL
     Route: 045
     Dates: start: 20170410, end: 20170410

REACTIONS (4)
  - Somnolence [Unknown]
  - Drug ineffective [Unknown]
  - Overdose [Recovered/Resolved]
  - Inappropriate schedule of drug administration [Unknown]

NARRATIVE: CASE EVENT DATE: 20170410
